FAERS Safety Report 7084328-5 (Version None)
Quarter: 2010Q4

REPORT INFORMATION
  Report Type: 
  Country: None (occurrence: None)
  Receive Date: 20101104
  Receipt Date: 20101029
  Transmission Date: 20110411
  Serious: Yes (Hospitalization)
  Sender: FDA-Public Use
  Company Number: FR-PFIZER INC-2010137793

PATIENT
  Age: 21 Year
  Sex: Female

DRUGS (1)
  1. FELDENE [Suspect]
     Indication: ARTHRALGIA
     Dosage: 20 MG, 2X/DAY
     Route: 048
     Dates: start: 20100929, end: 20101004

REACTIONS (5)
  - LYMPHADENOPATHY [None]
  - NEUTROPENIA [None]
  - PRURITUS [None]
  - RASH [None]
  - TRANSAMINASES INCREASED [None]
